FAERS Safety Report 10509061 (Version 1)
Quarter: 2014Q3

REPORT INFORMATION
  Report Type: Spontaneous
  Country: US (occurrence: None)
  Receive Date: 20140915
  Receipt Date: 20140915
  Transmission Date: 20150326
  Serious: Yes (Other)
  Sender: FDA-Public Use
  Company Number: 2014-US-002446

PATIENT
  Age: 16 Year
  Sex: Male

DRUGS (1)
  1. XYREM [Suspect]
     Active Substance: SODIUM OXYBATE
     Indication: NARCOLEPSY
     Route: 048
     Dates: start: 201402, end: 20140211

REACTIONS (3)
  - Agitation [None]
  - Anxiety [None]
  - Depression [None]

NARRATIVE: CASE EVENT DATE: 201402
